FAERS Safety Report 4448714-1 (Version None)
Quarter: 2004Q3

REPORT INFORMATION
  Report Type: 
  Country: None (occurrence: None)
  Receive Date: 20040909
  Receipt Date: 20040830
  Transmission Date: 20050211
  Serious: Yes (Hospitalization, Other)
  Sender: FDA-Public Use
  Company Number: KII-2001-0004645

PATIENT
  Sex: Female

DRUGS (1)
  1. OXYCONTIN [Suspect]
     Dosage: INTRAVENOUS
     Route: 042

REACTIONS (4)
  - DRUG ABUSER [None]
  - ENDOCARDITIS [None]
  - OVERDOSE [None]
  - SELF-MEDICATION [None]
